FAERS Safety Report 4709792-5 (Version None)
Quarter: 2005Q3

REPORT INFORMATION
  Report Type: 
  Country: None (occurrence: None)
  Receive Date: 20050708
  Receipt Date: 20050629
  Transmission Date: 20060218
  Serious: Yes (Other)
  Sender: FDA-Public Use
  Company Number: PHBS2005JP09549

PATIENT
  Age: 43 Year
  Sex: Female

DRUGS (1)
  1. LAMISIL [Suspect]
     Indication: NAIL TINEA
     Dosage: UNK, UNK
     Route: 048
     Dates: start: 20050706, end: 20050629

REACTIONS (5)
  - CALCULUS URINARY [None]
  - HAEMATURIA [None]
  - MALAISE [None]
  - PROTEIN URINE PRESENT [None]
  - RENAL DISORDER [None]
